FAERS Safety Report 4639344-7 (Version None)
Quarter: 2005Q2

REPORT INFORMATION
  Report Type: 
  Country: None (occurrence: None)
  Receive Date: 20050418
  Receipt Date: 20050404
  Transmission Date: 20051028
  Serious: Yes (Hospitalization, Other)
  Sender: FDA-Public Use
  Company Number: 2004109550

PATIENT
  Age: 79 Year
  Sex: Male

DRUGS (5)
  1. CELEBREX [Suspect]
     Indication: ILL-DEFINED DISORDER
     Dates: end: 20010601
  2. METFORMIN HCL [Concomitant]
  3. OXYBUTYNIN CHLORIDE [Concomitant]
  4. LISINOPRIL [Concomitant]
  5. GLUCOSAMINE (GLUCOSAMINE) [Concomitant]

REACTIONS (35)
  - ARTHRITIS [None]
  - BLOOD CREATINE PHOSPHOKINASE INCREASED [None]
  - BLOOD GLUCOSE INCREASED [None]
  - BLOOD UREA INCREASED [None]
  - CARBON DIOXIDE DECREASED [None]
  - CHEMICAL INJURY [None]
  - CHOLECYSTITIS CHRONIC [None]
  - CHOLELITHIASIS [None]
  - DECREASED APPETITE [None]
  - DIABETES MELLITUS [None]
  - DIARRHOEA [None]
  - DIVERTICULUM [None]
  - DUODENAL ULCER [None]
  - DUODENAL ULCER PERFORATION [None]
  - GASTRIC HAEMORRHAGE [None]
  - GASTRIC ULCER [None]
  - GLUCOSE URINE PRESENT [None]
  - HAEMATOCRIT DECREASED [None]
  - HAEMOGLOBIN DECREASED [None]
  - HIATUS HERNIA [None]
  - HYPERTENSION [None]
  - JOINT SWELLING [None]
  - KNEE ARTHROPLASTY [None]
  - LIPASE INCREASED [None]
  - OEDEMA PERIPHERAL [None]
  - OESOPHAGITIS [None]
  - ORCHIDECTOMY [None]
  - PERITONITIS [None]
  - PNEUMOPERITONEUM [None]
  - PROSTATE CANCER [None]
  - RED BLOOD CELL COUNT DECREASED [None]
  - RENAL CYST [None]
  - SPECIFIC GRAVITY URINE INCREASED [None]
  - URINE KETONE BODY PRESENT [None]
  - WEIGHT DECREASED [None]
